FAERS Safety Report 12333181 (Version 1)
Quarter: 2016Q2

REPORT INFORMATION
  Report Type: Spontaneous
  Country: US (occurrence: US)
  Receive Date: 20160504
  Receipt Date: 20160504
  Transmission Date: 20160815
  Serious: No
  Sender: FDA-Public Use
  Company Number: US-ROCHE-ITM201506IM017647

PATIENT
  Sex: Male
  Weight: 79.45 kg

DRUGS (2)
  1. ESBRIET [Suspect]
     Active Substance: PIRFENIDONE
     Indication: IDIOPATHIC PULMONARY FIBROSIS
     Dosage: 3 CAPSULE THREE TIMES IN A DAY
     Route: 048
     Dates: start: 20150508
  2. ESBRIET [Suspect]
     Active Substance: PIRFENIDONE
     Dosage: 2 CAPSULE THREE TIMES IN A DAY
     Route: 048

REACTIONS (7)
  - Lethargy [Unknown]
  - Asthenia [Unknown]
  - Dyspepsia [Unknown]
  - Abdominal pain upper [Unknown]
  - Diarrhoea [Unknown]
  - Incorrect dose administered [Unknown]
  - Nausea [Unknown]
